FAERS Safety Report 10648374 (Version 1)
Quarter: 2014Q4

REPORT INFORMATION
  Report Type: Report from Study
  Country: AR (occurrence: AR)
  Receive Date: 20141212
  Receipt Date: 20141212
  Transmission Date: 20150529
  Serious: Yes (Other)
  Sender: FDA-Public Use
  Company Number: PHHY2014AR158868

PATIENT
  Sex: Female

DRUGS (2)
  1. ONBREZ [Suspect]
     Active Substance: INDACATEROL
     Indication: EMPHYSEMA
     Dosage: UNK, QD
     Route: 065
     Dates: start: 2012, end: 201304
  2. ONBREZ [Suspect]
     Active Substance: INDACATEROL
     Indication: CHRONIC OBSTRUCTIVE PULMONARY DISEASE
     Dosage: UNK
     Route: 065
     Dates: start: 201408

REACTIONS (5)
  - Fall [Unknown]
  - Blood pressure increased [Recovering/Resolving]
  - Depression [Recovering/Resolving]
  - Pain [Recovering/Resolving]
  - Tendon rupture [Recovering/Resolving]

NARRATIVE: CASE EVENT DATE: 2013
